FAERS Safety Report 7991383-4 (Version None)
Quarter: 2011Q4

REPORT INFORMATION
  Report Type: 
  Country: None (occurrence: None)
  Receive Date: 20111219
  Receipt Date: 20111216
  Transmission Date: 20120403
  Serious: Yes (Death)
  Sender: FDA-Public Use
  Company Number: DE-PFIZER INC-2011298073

PATIENT
  Age: 34 Year
  Sex: Female
  Weight: 71 kg

DRUGS (5)
  1. METOPROLOL [Concomitant]
     Indication: HYPERTENSION
     Dosage: UNK
     Dates: start: 20100907
  2. METOPROLOL TARTRATE [Concomitant]
     Indication: HYPERTENSION
     Dosage: 1/2 DOSE OF 100
     Dates: start: 20101008
  3. OCTREOTIDE [Concomitant]
  4. LEVOTHYROXINE SODIUM [Concomitant]
     Indication: BLOOD THYROID STIMULATING HORMONE DECREASED
     Dosage: UNK
     Dates: start: 20100907
  5. PEGVISOMANT [Suspect]
     Indication: ACROMEGALY
     Dosage: 20 MG, 7 INJECTIONS PER WEEK

REACTIONS (1)
  - CARDIAC ANEURYSM [None]
